FAERS Safety Report 7865973-3 (Version None)
Quarter: 2011Q4

REPORT INFORMATION
  Report Type: 
  Country: None (occurrence: None)
  Receive Date: 20111028
  Receipt Date: 20110331
  Transmission Date: 20120403
  Serious: No
  Sender: FDA-Public Use
  Company Number: US-GLAXOSMITHKLINE-A0920872A

PATIENT
  Age: 62 Year
  Sex: Male
  Weight: 113.6 kg

DRUGS (8)
  1. FEXOFENADINE [Concomitant]
  2. SIMVASTATIN [Concomitant]
  3. ULTRAM [Concomitant]
  4. ZYLOPRIM [Concomitant]
     Dosage: 300MG PER DAY
  5. ULTRACET [Concomitant]
  6. COLCHICINE [Concomitant]
  7. ADVAIR DISKUS 100/50 [Suspect]
     Indication: CHRONIC OBSTRUCTIVE PULMONARY DISEASE
     Route: 055
     Dates: start: 20090923, end: 20100206
  8. FAMOTIDINE [Concomitant]

REACTIONS (7)
  - ORAL DISORDER [None]
  - SKIN DISCOLOURATION [None]
  - RASH ERYTHEMATOUS [None]
  - GENITAL RASH [None]
  - OROPHARYNGEAL BLISTERING [None]
  - TONSILLAR DISORDER [None]
  - ORAL CANDIDIASIS [None]
